FAERS Safety Report 18514811 (Version 2)
Quarter: 2021Q4

REPORT INFORMATION
  Report Type: Spontaneous
  Country: US (occurrence: US)
  Receive Date: 20201118
  Receipt Date: 20211129
  Transmission Date: 20220304
  Serious: No
  Sender: FDA-Public Use
  Company Number: US-UCBSA-2020017889

PATIENT
  Sex: Female
  Weight: 54 kg

DRUGS (1)
  1. VIMPAT [Suspect]
     Active Substance: LACOSAMIDE
     Indication: Epilepsy
     Dosage: 200 MG IN MORNING AND 300 MG AT NIGHT
     Dates: start: 20151215

REACTIONS (2)
  - Off label use [Unknown]
  - Overdose [Unknown]
